FAERS Safety Report 9328124 (Version 1)
Quarter: 2013Q2

REPORT INFORMATION
  Report Type: Spontaneous
  Country: US (occurrence: US)
  Receive Date: 20130604
  Receipt Date: 20130604
  Transmission Date: 20140414
  Serious: No
  Sender: FDA-Public Use
  Company Number: US-SANOFI-AVENTIS-2012SA033229

PATIENT
  Age: 69 Year
  Sex: Female
  Weight: 69.85 kg

DRUGS (7)
  1. LANTUS [Suspect]
     Indication: TYPE 2 DIABETES MELLITUS
     Dosage: DOSE:20 UNIT(S)
     Route: 058
     Dates: start: 2007
  2. SOLOSTAR [Suspect]
     Indication: TYPE 2 DIABETES MELLITUS
     Dates: start: 2007
  3. COUMADIN [Concomitant]
     Indication: THROMBOSIS
     Dates: start: 1988
  4. LOVASTIN [Concomitant]
     Indication: BLOOD CHOLESTEROL INCREASED
  5. METFORMIN [Concomitant]
     Indication: TYPE 2 DIABETES MELLITUS
     Dates: start: 1997
  6. PACERONE [Concomitant]
     Indication: HEART RATE IRREGULAR
     Dates: start: 1998
  7. DIGOXIN [Concomitant]

REACTIONS (1)
  - Pain [Unknown]
